FAERS Safety Report 5015539-8 (Version None)
Quarter: 2006Q2

REPORT INFORMATION
  Report Type: 
  Country: None (occurrence: None)
  Receive Date: 20060601
  Receipt Date: 20060522
  Transmission Date: 20061013
  Serious: Yes (Other)
  Sender: FDA-Public Use
  Company Number: US-AMGEN-US180369

PATIENT
  Sex: Male

DRUGS (3)
  1. NEULASTA [Suspect]
     Indication: CHEMOTHERAPY
     Dates: start: 20060516, end: 20060516
  2. TAXOTERE [Concomitant]
     Route: 041
     Dates: start: 20060516, end: 20060516
  3. HYDROCODONE [Concomitant]
     Route: 048

REACTIONS (7)
  - ARTHRALGIA [None]
  - CHILLS [None]
  - DIFFICULTY IN WALKING [None]
  - INADEQUATE ANALGESIA [None]
  - INFECTION [None]
  - MUSCULOSKELETAL PAIN [None]
  - PYREXIA [None]
